FAERS Safety Report 7773533-8 (Version None)
Quarter: 2011Q3

REPORT INFORMATION
  Report Type: 
  Country: None (occurrence: None)
  Receive Date: 20110922
  Receipt Date: 20110913
  Transmission Date: 20111222
  Serious: Yes (Other)
  Sender: FDA-Public Use
  Company Number: CA-GENENTECH-324620

PATIENT
  Sex: Female

DRUGS (1)
  1. LUCENTIS [Suspect]
     Indication: PRODUCT USED FOR UNKNOWN INDICATION
     Dosage: 0.5 MG, UNKNOWN
     Route: 031
     Dates: start: 20110408

REACTIONS (4)
  - VISUAL IMPAIRMENT [None]
  - SCOTOMA [None]
  - OCULAR HYPERAEMIA [None]
  - EYE IRRITATION [None]
